FAERS Safety Report 23034978 (Version 1)
Quarter: 2023Q4

REPORT INFORMATION
  Report Type: Spontaneous
  Country: US (occurrence: US)
  Receive Date: 20231005
  Receipt Date: 20231005
  Transmission Date: 20240110
  Serious: No
  Sender: FDA-Public Use
  Company Number: US-SUN PHARMACEUTICAL INDUSTRIES LTD-2023R1-388706

PATIENT
  Sex: Female

DRUGS (1)
  1. CLONAZEPAM [Suspect]
     Active Substance: CLONAZEPAM
     Indication: Anxiety
     Dosage: UNK, BID
     Route: 065

REACTIONS (4)
  - Drug ineffective [Unknown]
  - Feeling abnormal [Unknown]
  - Product taste abnormal [Unknown]
  - Underdose [Unknown]
